FAERS Safety Report 9525502 (Version 1)
Quarter: 2013Q3

REPORT INFORMATION
  Report Type: Spontaneous
  Country: US (occurrence: US)
  Receive Date: 20130916
  Receipt Date: 20130916
  Transmission Date: 20140515
  Serious: Yes (Other)
  Sender: FDA-Public Use
  Company Number: US-BAYER-2013-109928

PATIENT
  Age: 15 Year
  Sex: Female
  Weight: 45.35 kg

DRUGS (2)
  1. ALEVE CAPLET [Suspect]
     Indication: PAIN IN EXTREMITY
     Dosage: 2 DF, ONCE
     Route: 048
     Dates: start: 20130907, end: 20130907
  2. ALEVE CAPLET [Suspect]
     Indication: MYALGIA

REACTIONS (9)
  - Dysarthria [Recovered/Resolved]
  - Fall [Recovered/Resolved]
  - Feeling drunk [Recovered/Resolved]
  - Dermatitis contact [Recovered/Resolved]
  - Nausea [Recovered/Resolved]
  - Vomiting [Recovered/Resolved]
  - Muscular weakness [Recovered/Resolved]
  - Abdominal pain upper [Recovered/Resolved]
  - Dizziness [Recovered/Resolved]
